FAERS Safety Report 19257215 (Version 1)
Quarter: 2021Q2

REPORT INFORMATION
  Report Type: Spontaneous
  Country: US (occurrence: US)
  Receive Date: 20210514
  Receipt Date: 20210514
  Transmission Date: 20210717
  Serious: Yes (Disabling)
  Sender: FDA-Public Use
  Company Number: US-TEVA-2021-US-1913272

PATIENT

DRUGS (1)
  1. DOCETAXEL SAGENT [Suspect]
     Active Substance: DOCETAXEL
     Route: 065
     Dates: start: 2015, end: 2015

REACTIONS (1)
  - Alopecia [Unknown]
